FAERS Safety Report 7206166-2 (Version None)
Quarter: 2011Q1

REPORT INFORMATION
  Report Type: 
  Country: None (occurrence: None)
  Receive Date: 20110103
  Receipt Date: 20101222
  Transmission Date: 20110831
  Serious: Yes (Other)
  Sender: FDA-Public Use
  Company Number: BR-JNJFOC-20101208048

PATIENT
  Age: 47 Year
  Sex: Female

DRUGS (2)
  1. DIPHENHYDRAMINE [Concomitant]
     Indication: PREMEDICATION
  2. INFLIXIMAB, RECOMBINANT [Suspect]
     Indication: PRODUCT USED FOR UNKNOWN INDICATION
     Dosage: WEEK 0, 2, 6
     Route: 042

REACTIONS (3)
  - CEREBROVASCULAR ACCIDENT [None]
  - HYPERTENSION [None]
  - HYPOTENSION [None]
